FAERS Safety Report 14269114 (Version 1)
Quarter: 2017Q4

REPORT INFORMATION
  Report Type: Spontaneous
  Country: US (occurrence: US)
  Receive Date: 20171211
  Receipt Date: 20171211
  Transmission Date: 20180321
  Serious: Yes (Hospitalization)
  Sender: FDA-Public Use
  Company Number: US-FRESENIUS KABI-FK201710645

PATIENT
  Age: 41 Year
  Sex: Female

DRUGS (3)
  1. PHENOBARBATOL [Concomitant]
     Indication: GENERALISED TONIC-CLONIC SEIZURE
     Route: 065
  2. MIDAZOLAM [Suspect]
     Active Substance: MIDAZOLAM HYDROCHLORIDE
     Indication: GENERALISED TONIC-CLONIC SEIZURE
     Route: 065
  3. KETAMINE [Concomitant]
     Active Substance: KETAMINE
     Indication: GENERALISED TONIC-CLONIC SEIZURE
     Route: 065

REACTIONS (1)
  - Metabolic acidosis [Unknown]
